FAERS Safety Report 9103885 (Version 2)
Quarter: 2013Q1

REPORT INFORMATION
  Report Type: Spontaneous
  Country: VE (occurrence: VE)
  Receive Date: 20130219
  Receipt Date: 20130307
  Transmission Date: 20140127
  Serious: Yes (Other)
  Sender: FDA-Public Use
  Company Number: VE-ROCHE-1192597

PATIENT
  Age: 22 Year
  Sex: Female

DRUGS (4)
  1. XOLAIR [Suspect]
     Indication: ASTHMA
     Route: 058
     Dates: start: 20130107, end: 201302
  2. XOLAIR [Suspect]
     Route: 058
     Dates: start: 20121205
  3. XOLAIR [Suspect]
     Route: 058
     Dates: start: 20130124, end: 201302
  4. VANNAIR [Concomitant]

REACTIONS (3)
  - Convulsion [Recovered/Resolved]
  - Dizziness [Recovered/Resolved]
  - Blood immunoglobulin E increased [Unknown]
